FAERS Safety Report 6861441-6 (Version None)
Quarter: 2010Q3

REPORT INFORMATION
  Report Type: 
  Country: None (occurrence: None)
  Receive Date: 20100720
  Receipt Date: 20100713
  Transmission Date: 20110219
  Serious: Yes (Hospitalization)
  Sender: FDA-Public Use
  Company Number: FR-AMGEN-QUU423982

PATIENT
  Sex: Male

DRUGS (15)
  1. NEULASTA [Suspect]
     Indication: CHEMOTHERAPY
     Route: 058
     Dates: start: 20100607, end: 20100607
  2. NEUPOGEN [Suspect]
     Dates: start: 20100609
  3. VELCADE [Concomitant]
     Dates: start: 20090818
  4. DEXAMETHASONE [Concomitant]
     Dates: start: 20090818
  5. VERAPAMIL [Concomitant]
     Route: 048
     Dates: end: 20100609
  6. ALKERAN [Concomitant]
  7. ZOPHREN [Concomitant]
     Dates: start: 20100531, end: 20100607
  8. ACUPAN [Concomitant]
     Route: 042
     Dates: start: 20100531, end: 20100609
  9. COVERSYL [Concomitant]
     Route: 048
     Dates: start: 20100602, end: 20100609
  10. BISOPROLOL [Concomitant]
     Route: 048
     Dates: start: 20100602, end: 20100609
  11. FUROSEMIDE [Concomitant]
     Route: 048
     Dates: start: 20100602, end: 20100609
  12. LARGACTIL [Concomitant]
     Route: 042
     Dates: start: 20100603, end: 20100609
  13. ZOLPIDEM [Concomitant]
     Route: 048
     Dates: start: 20100605, end: 20100609
  14. CEFTRIAXONE [Concomitant]
     Route: 042
     Dates: start: 20100605, end: 20100609
  15. GENTAMICIN [Concomitant]
     Route: 042
     Dates: start: 20100605, end: 20100609

REACTIONS (3)
  - PANCYTOPENIA [None]
  - RENAL TUBULAR DISORDER [None]
  - VENTRICULAR HYPOKINESIA [None]
